FAERS Safety Report 15075450 (Version 1)
Quarter: 2018Q2

REPORT INFORMATION
  Report Type: Report from Study
  Country: US (occurrence: US)
  Receive Date: 20180627
  Receipt Date: 20180627
  Transmission Date: 20180711
  Serious: Yes (Other)
  Sender: FDA-Public Use
  Company Number: US-SAOL THERAPEUTICS-2017SAO01596

PATIENT
  Age: 80 Year
  Sex: Male
  Weight: 56.4 kg

DRUGS (36)
  1. FENTANYL. [Suspect]
     Active Substance: FENTANYL
     Dosage: 121.49 ?G, \DAY
     Route: 037
  2. FENTANYL. [Suspect]
     Active Substance: FENTANYL
     Dosage: 250.23 ?G, \DAY
     Route: 037
  3. BUPIVACAINE. [Suspect]
     Active Substance: BUPIVACAINE
     Dosage: 15.014 MG, \DAY
     Route: 037
  4. COMPOUNDED BACLOFEN [Suspect]
     Active Substance: BACLOFEN
     Dosage: 140.20 ?G, \DAY
     Route: 037
     Dates: start: 20170914
  5. COMPOUNDED BACLOFEN [Suspect]
     Active Substance: BACLOFEN
     Dosage: 145.17 ?G, \DAY
     Route: 037
     Dates: start: 20170119, end: 20170124
  6. COMPOUNDED BACLOFEN [Suspect]
     Active Substance: BACLOFEN
     Dosage: 90.28 ?G, \DAY
     Route: 037
     Dates: start: 20170511
  7. FENTANYL. [Suspect]
     Active Substance: FENTANYL
     Dosage: 399.7 ?G, \DAY
     Route: 037
     Dates: start: 20171207, end: 20171222
  8. BUPIVACAINE. [Suspect]
     Active Substance: BUPIVACAINE
     Dosage: 7.995 MG, \DAY
     Route: 037
     Dates: start: 20171207, end: 20171222
  9. BUPIVACAINE. [Suspect]
     Active Substance: BUPIVACAINE
     Dosage: 5.005 MG, \DAY
     Route: 037
     Dates: start: 20180222, end: 20180226
  10. BUPIVACAINE. [Suspect]
     Active Substance: BUPIVACAINE
     Dosage: 5.511 MG, \DAY
     Route: 037
     Dates: start: 20180226
  11. COMPOUNDED BACLOFEN [Suspect]
     Active Substance: BACLOFEN
     Dosage: 130.47 ?G, \DAY
     Route: 037
     Dates: start: 20170124
  12. FENTANYL. [Suspect]
     Active Substance: FENTANYL
     Dosage: 289.63 ?G, \DAY
     Route: 037
     Dates: end: 20170119
  13. BUPIVACAINE. [Suspect]
     Active Substance: BUPIVACAINE
     Dosage: 10.834 MG, \DAY
     Route: 037
     Dates: start: 20170511
  14. BUPIVACAINE. [Suspect]
     Active Substance: BUPIVACAINE
     Dosage: 29.0 MG, \DAY
     Route: 037
  15. COMPOUNDED BACLOFEN [Suspect]
     Active Substance: BACLOFEN
     Dosage: 100.09 ?G, \DAY
     Route: 037
     Dates: start: 20180222, end: 20180226
  16. FENTANYL. [Suspect]
     Active Substance: FENTANYL
     Dosage: 350.5 ?G, \DAY
     Route: 037
     Dates: start: 20170914
  17. FENTANYL. [Suspect]
     Active Substance: FENTANYL
     Dosage: 519.6 ?G, \DAY
     Route: 037
     Dates: start: 20180207
  18. FENTANYL. [Suspect]
     Active Substance: FENTANYL
     Dosage: 275.5 ?G, \DAY
     Route: 037
     Dates: start: 20180226
  19. COMPOUNDED BACLOFEN [Suspect]
     Active Substance: BACLOFEN
     Dosage: 144.82 ?G, \DAY
     Route: 037
     Dates: end: 20170119
  20. COMPOUNDED BACLOFEN [Suspect]
     Active Substance: BACLOFEN
     Dosage: 159.90 ?G, \DAY
     Route: 037
     Dates: start: 20171207, end: 20171222
  21. COMPOUNDED BACLOFEN [Suspect]
     Active Substance: BACLOFEN
     Dosage: 207.82 ?G, \DAY
     Route: 037
     Dates: start: 20180207
  22. BUPIVACAINE. [Suspect]
     Active Substance: BUPIVACAINE
     Dosage: 17.420 MG, \DAY
     Route: 037
     Dates: start: 20170119, end: 20170124
  23. BUPIVACAINE. [Suspect]
     Active Substance: BUPIVACAINE
     Dosage: 15.656 MG, \DAY
     Route: 037
     Dates: start: 20170124
  24. FENTANYL. [Suspect]
     Active Substance: FENTANYL
     Dosage: 619.1 ?G, \DAY
     Route: 037
     Dates: start: 20171222, end: 20180207
  25. FENTANYL. [Suspect]
     Active Substance: FENTANYL
     Dosage: 250.2 ?G, \DAY
     Route: 037
     Dates: start: 20180222, end: 20180226
  26. COMPOUNDED BACLOFEN [Suspect]
     Active Substance: BACLOFEN
     Dosage: 125.12 ?G, \DAY
     Route: 037
  27. FENTANYL. [Suspect]
     Active Substance: FENTANYL
     Dosage: 180.56 ?G, \DAY
     Route: 037
     Dates: start: 20170511
  28. COMPOUNDED BACLOFEN [Suspect]
     Active Substance: BACLOFEN
     Dosage: 247.63 ?G, \DAY
     Route: 037
     Dates: start: 20171222, end: 20180207
  29. COMPOUNDED BACLOFEN [Suspect]
     Active Substance: BACLOFEN
     Dosage: 110.22 ?G, \DAY
     Route: 037
     Dates: start: 20180226
  30. FENTANYL. [Suspect]
     Active Substance: FENTANYL
     Dosage: 260.94 ?G, \DAY
     Route: 037
     Dates: start: 20170124
  31. COMPOUNDED BACLOFEN [Suspect]
     Active Substance: BACLOFEN
     Dosage: 145 ?G\DAY
     Route: 037
  32. FENTANYL. [Suspect]
     Active Substance: FENTANYL
     Dosage: 290.33 ?G, \DAY
     Route: 037
     Dates: start: 20170119, end: 20170124
  33. BUPIVACAINE. [Suspect]
     Active Substance: BUPIVACAINE
     Dosage: 28.963 MG, \DAY
     Route: 037
     Dates: end: 20170119
  34. BUPIVACAINE. [Suspect]
     Active Substance: BUPIVACAINE
     Dosage: 7.010 MG, \DAY
     Route: 037
     Dates: start: 20170914
  35. BUPIVACAINE. [Suspect]
     Active Substance: BUPIVACAINE
     Dosage: 12.382 MG, \DAY
     Route: 037
     Dates: start: 20171222, end: 20180207
  36. BUPIVACAINE. [Suspect]
     Active Substance: BUPIVACAINE
     Dosage: 10.391 MG, \DAY
     Route: 037
     Dates: start: 20180207

REACTIONS (11)
  - Therapy non-responder [Recovered/Resolved]
  - Unevaluable event [Recovered/Resolved]
  - Hypoaesthesia [Recovered/Resolved]
  - Device malfunction [Recovered/Resolved]
  - Drug withdrawal syndrome [Recovered/Resolved]
  - Pollakiuria [Unknown]
  - Urinary incontinence [Recovered/Resolved]
  - Pain [Recovered/Resolved]
  - Urinary retention [Recovered/Resolved]
  - Muscular weakness [Recovered/Resolved]
  - Paraesthesia [Unknown]

NARRATIVE: CASE EVENT DATE: 20170119
